FAERS Safety Report 5515139-7 (Version None)
Quarter: 2007Q4

REPORT INFORMATION
  Report Type: 
  Country: None (occurrence: None)
  Receive Date: 20071113
  Receipt Date: 20070112
  Transmission Date: 20080405
  Serious: No
  Sender: FDA-Public Use
  Company Number: A0635751A

PATIENT
  Sex: Female

DRUGS (2)
  1. COREG [Suspect]
     Dosage: 12.5MG TWICE PER DAY
     Route: 048
  2. PREMARIN [Suspect]
     Indication: DRUG USE FOR UNKNOWN INDICATION
     Dosage: 1.25MG VARIABLE DOSE
     Route: 048

REACTIONS (1)
  - ALOPECIA [None]
